FAERS Safety Report 21161736 (Version 2)
Quarter: 2022Q3

REPORT INFORMATION
  Report Type: Spontaneous
  Country: DE (occurrence: DE)
  Receive Date: 20220802
  Receipt Date: 20220914
  Transmission Date: 20221027
  Serious: Yes (Other)
  Sender: FDA-Public Use
  Company Number: DE-GILEAD-2022-0591528

PATIENT
  Age: 12 Year
  Sex: Male
  Weight: 48 kg

DRUGS (8)
  1. VEKLURY [Suspect]
     Active Substance: REMDESIVIR
     Indication: COVID-19
     Dosage: 5 MG/KG, ONCE
     Route: 042
     Dates: start: 202010
  2. VEKLURY [Suspect]
     Active Substance: REMDESIVIR
     Dosage: 2.5 MG/KG X4 DAYS
     Route: 042
     Dates: end: 20201026
  3. DEXAMETHASONE [Concomitant]
     Active Substance: DEXAMETHASONE
     Indication: COVID-19
  4. ALBUTEROL [Concomitant]
     Active Substance: ALBUTEROL
  5. FLUTICASONE [Concomitant]
     Active Substance: FLUTICASONE
  6. PIPERACILLIN AND TAZOBACTAM [Concomitant]
     Active Substance: PIPERACILLIN SODIUM\TAZOBACTAM SODIUM
     Indication: COVID-19
  7. VALPROIC ACID [Concomitant]
     Active Substance: VALPROIC ACID
  8. PREGABALIN [Concomitant]
     Active Substance: PREGABALIN

REACTIONS (2)
  - Bradycardia [Recovered/Resolved]
  - Off label use [Recovered/Resolved]

NARRATIVE: CASE EVENT DATE: 20201001
